FAERS Safety Report 4376803-9 (Version None)
Quarter: 2004Q2

REPORT INFORMATION
  Report Type: 
  Country: None (occurrence: None)
  Receive Date: 20040614
  Receipt Date: 20030822
  Transmission Date: 20050107
  Serious: Yes (Other)
  Sender: FDA-Public Use
  Company Number: 2003UW10824

PATIENT
  Age: 43 Year
  Sex: Male

DRUGS (6)
  1. LIDOCAINE [Suspect]
     Indication: JOINT ARTHROPLASTY
  2. MEPIVACAINE HCL [Suspect]
     Indication: JOINT ARTHROPLASTY
  3. BUPIVACAINE [Suspect]
  4. PAROXETINE HCL [Concomitant]
  5. LISINOPRIL [Concomitant]
  6. BUPIVACAINE [Suspect]

REACTIONS (3)
  - BLEPHAROSPASM [None]
  - MEDICATION ERROR [None]
  - MUSCLE TWITCHING [None]
